FAERS Safety Report 14726459 (Version 1)
Quarter: 2018Q2

REPORT INFORMATION
  Report Type: Spontaneous
  Country: US (occurrence: US)
  Receive Date: 20180406
  Receipt Date: 20180406
  Transmission Date: 20180711
  Serious: No
  Sender: FDA-Public Use
  Company Number: US-PFIZER INC-2018139486

PATIENT
  Age: 30 Year
  Sex: Male
  Weight: 90.72 kg

DRUGS (6)
  1. LYRICA [Suspect]
     Active Substance: PREGABALIN
     Indication: NEURALGIA
     Dosage: 50 MG, UNK
     Route: 048
  2. QUETIAPINE. [Concomitant]
     Active Substance: QUETIAPINE
     Indication: SLEEP DISORDER
     Dosage: 25 MG, ONCE A DAY AT NIGHT
  3. TRAZODONE [Concomitant]
     Active Substance: TRAZODONE HYDROCHLORIDE
     Indication: SLEEP DISORDER
     Dosage: 50MG, ONCE A DAY AT NIGHT
  4. TRAZODONE [Concomitant]
     Active Substance: TRAZODONE HYDROCHLORIDE
     Indication: CEREBRAL DISORDER
  5. LYRICA [Suspect]
     Active Substance: PREGABALIN
     Dosage: 75 MG, UNK
     Route: 048
  6. QUETIAPINE. [Concomitant]
     Active Substance: QUETIAPINE
     Indication: CEREBRAL DISORDER

REACTIONS (1)
  - Drug ineffective [Unknown]
